FAERS Safety Report 12720536 (Version 2)
Quarter: 2016Q4

REPORT INFORMATION
  Report Type: Spontaneous
  Country: FR (occurrence: FR)
  Receive Date: 20160907
  Receipt Date: 20161005
  Transmission Date: 20170207
  Serious: Yes (Death, Hospitalization)
  Sender: FDA-Public Use
  Company Number: FR-ROCHE-1826480

PATIENT
  Age: 64 Year
  Sex: Male

DRUGS (6)
  1. PERMIXON [Concomitant]
     Active Substance: SAW PALMETTO
  2. CO-RENITEC [Concomitant]
     Active Substance: ENALAPRIL\HYDROCHLOROTHIAZIDE
  3. INEGY [Concomitant]
     Active Substance: EZETIMIBE\SIMVASTATIN
  4. KARDEGIC [Concomitant]
     Active Substance: ASPIRIN LYSINE
  5. ZELBORAF [Suspect]
     Active Substance: VEMURAFENIB
     Indication: METASTATIC MALIGNANT MELANOMA
     Route: 048
     Dates: start: 20160730, end: 20160815
  6. COTELLIC [Suspect]
     Active Substance: COBIMETINIB
     Indication: METASTATIC MALIGNANT MELANOMA
     Route: 048
     Dates: start: 20160730, end: 20160815

REACTIONS (1)
  - Drug reaction with eosinophilia and systemic symptoms [Fatal]

NARRATIVE: CASE EVENT DATE: 20160814
